FAERS Safety Report 10590951 (Version 2)
Quarter: 2014Q4

REPORT INFORMATION
  Report Type: Spontaneous
  Country: US (occurrence: US)
  Receive Date: 20141118
  Receipt Date: 20141118
  Transmission Date: 20150529
  Serious: No
  Sender: FDA-Public Use
  Company Number: US-TEVA-519367USA

PATIENT
  Sex: Female

DRUGS (1)
  1. COPAXONE [Suspect]
     Active Substance: GLATIRAMER ACETATE
     Indication: MULTIPLE SCLEROSIS

REACTIONS (11)
  - Adverse event [Unknown]
  - Eye swelling [Unknown]
  - Peripheral swelling [Unknown]
  - Injection site urticaria [Unknown]
  - Erythema [Unknown]
  - Burning sensation [Unknown]
  - Pain [Unknown]
  - Swelling face [Unknown]
  - Urticaria [Unknown]
  - Dyspnoea [Unknown]
  - Injection site erythema [Unknown]

NARRATIVE: CASE EVENT DATE: 201411
